FAERS Safety Report 9562610 (Version 1)
Quarter: 2013Q3

REPORT INFORMATION
  Report Type: Report from Study
  Country: US (occurrence: US)
  Receive Date: 20130927
  Receipt Date: 20130927
  Transmission Date: 20140515
  Serious: Yes (Disabling)
  Sender: FDA-Public Use
  Company Number: US-PFIZER INC-2013274117

PATIENT
  Age: 29 Year
  Sex: Female
  Weight: 81 kg

DRUGS (32)
  1. INOTUZUMAB OZOGAMICIN [Suspect]
     Indication: ACUTE LYMPHOCYTIC LEUKAEMIA
     Dosage: 1 MG, CYCLIC (WEEKLY, 3-4 WEEK CYCLE)
     Route: 042
     Dates: start: 20130829, end: 20130912
  2. DOXORUBICIN HCL [Suspect]
     Indication: ACUTE LYMPHOCYTIC LEUKAEMIA
     Dosage: 60 MG, CYCLIC ( DAY 4  AND 5 OF INDUCTION)
     Route: 042
     Dates: start: 20130726, end: 20130727
  3. PREDNISONE [Concomitant]
     Indication: ACUTE LYMPHOCYTIC LEUKAEMIA
     Dosage: UNK
     Dates: start: 201307
  4. LOVENOX [Concomitant]
     Indication: PROPHYLAXIS
     Dosage: UNK
     Dates: start: 20130724
  5. ACYCLOVIR [Concomitant]
     Indication: INFECTION PROPHYLAXIS
     Dosage: UNK
     Dates: start: 201307
  6. PANTOPRAZOLE [Concomitant]
     Indication: GASTROOESOPHAGEAL REFLUX DISEASE
     Dosage: UNK
     Dates: start: 201308
  7. CENTRUM SILVER [Concomitant]
     Indication: SUPPLEMENTATION THERAPY
     Dosage: UNK
     Dates: start: 201307
  8. OS-CAL D [Concomitant]
     Indication: SUPPLEMENTATION THERAPY
     Dosage: UNK
     Dates: start: 201307
  9. TUMS [Concomitant]
     Indication: GASTROOESOPHAGEAL REFLUX DISEASE
     Dosage: UNK
     Dates: start: 201307
  10. ATIVAN [Concomitant]
     Indication: NAUSEA
     Dosage: UNK
     Dates: start: 201307
  11. ATIVAN [Concomitant]
     Indication: VOMITING
  12. COMPAZINE [Concomitant]
     Indication: NAUSEA
     Dosage: UNK
     Dates: start: 201307
  13. COMPAZINE [Concomitant]
     Indication: VOMITING
  14. NYSTATIN [Concomitant]
     Indication: ORAL CANDIDIASIS
     Dosage: UNK
     Dates: start: 20130829
  15. MICAFUNGIN [Concomitant]
     Indication: INFECTION PROPHYLAXIS
     Dosage: UNK
     Dates: start: 201307
  16. AUGMENTIN [Concomitant]
     Indication: INFECTION PROPHYLAXIS
     Dosage: UNK
     Dates: start: 201308
  17. ALLOPURINOL [Concomitant]
     Indication: PROPHYLAXIS
     Dosage: UNK
     Dates: start: 201307
  18. TYLENOL [Concomitant]
     Indication: PREMEDICATION
     Dosage: UNK
     Dates: start: 20130829
  19. BENADRYL [Concomitant]
     Indication: PREMEDICATION
     Dosage: UNK
     Dates: start: 20130829
  20. HYDROCORTISONE [Concomitant]
     Indication: PREMEDICATION
     Dosage: UNK
     Dates: start: 20130829
  21. MIRENA [Concomitant]
     Indication: CONTRACEPTION
     Dosage: UNK
     Dates: start: 201305
  22. COLACE [Concomitant]
     Indication: CONSTIPATION
     Dosage: UNK
     Dates: start: 201308
  23. MIRALAX [Concomitant]
     Indication: CONSTIPATION
     Dosage: UNK
     Dates: start: 201308
  24. SENNA [Concomitant]
     Indication: CONSTIPATION
     Dosage: UNK
     Dates: start: 201308
  25. AMBIEN [Concomitant]
     Indication: INSOMNIA
     Dosage: UNK
     Dates: start: 201307
  26. OXYCONTIN [Concomitant]
     Indication: PAIN
     Dosage: UNK
     Dates: start: 20130818
  27. OXYCODONE [Concomitant]
     Indication: PAIN
     Dosage: UNK
     Dates: start: 201307
  28. ZOFRAN [Concomitant]
     Indication: NAUSEA
     Dosage: UNK
     Dates: start: 201307
  29. ZOFRAN [Concomitant]
     Indication: VOMITING
  30. REGLAN [Concomitant]
     Indication: GASTROOESOPHAGEAL REFLUX DISEASE
     Dosage: UNK
     Dates: start: 20130905
  31. VOLTAREN [Concomitant]
     Indication: PAIN
     Dosage: UNK
     Dates: start: 20130830
  32. VOLTAREN [Concomitant]
     Indication: MUSCULOSKELETAL STIFFNESS

REACTIONS (1)
  - Left ventricular dysfunction [Not Recovered/Not Resolved]
